FAERS Safety Report 7463837-0 (Version None)
Quarter: 2011Q2

REPORT INFORMATION
  Report Type: 
  Country: None (occurrence: None)
  Receive Date: 20110506
  Receipt Date: 20110427
  Transmission Date: 20111010
  Serious: Yes (Other)
  Sender: FDA-Public Use
  Company Number: US-JNJFOC-20110500889

PATIENT
  Sex: Female
  Weight: 104.33 kg

DRUGS (7)
  1. LEVAQUIN [Suspect]
     Indication: VIRAL INFECTION
     Route: 048
  2. ACETAMINOPHEN [Suspect]
     Indication: PYREXIA
  3. OXYCODONE [Concomitant]
     Indication: PAIN
     Route: 048
  4. ACETAMINOPHEN [Suspect]
     Indication: VIRAL INFECTION
  5. PERCOCET [Concomitant]
     Indication: PAIN
     Route: 048
  6. SIMPONI [Suspect]
     Indication: PSORIATIC ARTHROPATHY
     Route: 058
  7. LEVAQUIN [Suspect]
     Indication: PYREXIA
     Route: 048

REACTIONS (3)
  - MULTIPLE ALLERGIES [None]
  - MACULAR DEGENERATION [None]
  - ABDOMINAL DISCOMFORT [None]
